FAERS Safety Report 9245835 (Version 2)
Quarter: 2013Q2

REPORT INFORMATION
  Report Type: Spontaneous
  Country: US (occurrence: US)
  Receive Date: 20130422
  Receipt Date: 20130513
  Transmission Date: 20140414
  Serious: No
  Sender: FDA-Public Use
  Company Number: US-PFIZER INC-2013121223

PATIENT
  Age: 76 Year
  Sex: Male
  Weight: 109 kg

DRUGS (3)
  1. VIAGRA [Suspect]
     Indication: ERECTILE DYSFUNCTION
     Dosage: 100 MG, AS NEEDED (AROUND FIVE TIMES IN A MONTH) PRIOR TO SEX
     Route: 048
  2. IBUPROFEN [Concomitant]
     Indication: BACK PAIN
     Dosage: UNK
  3. ACYCLOVIR [Concomitant]
     Indication: PROPHYLAXIS
     Dosage: UNK

REACTIONS (1)
  - Drug ineffective [Unknown]
